FAERS Safety Report 10460933 (Version 1)
Quarter: 2014Q3

REPORT INFORMATION
  Report Type: Spontaneous
  Country: US (occurrence: None)
  Receive Date: 20140917
  Receipt Date: 20140917
  Transmission Date: 20150326
  Serious: Yes (Life-Threatening)
  Sender: FDA-Public Use
  Company Number: None

PATIENT
  Age: 64 Year
  Sex: Female
  Weight: 81.19 kg

DRUGS (1)
  1. FENTANYL. [Suspect]
     Active Substance: FENTANYL
     Indication: PAIN
     Dosage: ONE PER 3 DAYS   ONE PER 3 DAYS  --
     Dates: start: 20140912, end: 20140915

REACTIONS (5)
  - Headache [None]
  - Fear [None]
  - Nausea [None]
  - Feeling abnormal [None]
  - Dyspnoea [None]

NARRATIVE: CASE EVENT DATE: 20140915
